FAERS Safety Report 20544292 (Version 1)
Quarter: 2022Q1

REPORT INFORMATION
  Report Type: Other
  Country: FR (occurrence: None)
  Receive Date: 20220303
  Receipt Date: 20220303
  Transmission Date: 20220423
  Serious: Yes (Death, Other)
  Sender: FDA-Public Use
  Company Number: FR-ROCHE-555696

PATIENT

DRUGS (3)
  1. CAPECITABINE [Suspect]
     Active Substance: CAPECITABINE
     Indication: Breast cancer metastatic
     Dosage: GIVEN ON DAYS 1-14 EVERY 3 WKS
     Route: 048
  2. VINORELBINE [Suspect]
     Active Substance: VINORELBINE TARTRATE
     Indication: Breast cancer metastatic
     Dosage: DRUG GIVEN ON DAYS ONE AND EIGHT OF FIRST THREE WEEKS CYCLE.
     Route: 048
  3. VINORELBINE [Suspect]
     Active Substance: VINORELBINE TARTRATE
     Dosage: SUBSEQUENT CYCLES IN THE ABSENCE OF GRADE 3 OR 4 HAEMATOLOGICAL TOXICITY
     Route: 048

REACTIONS (20)
  - Sepsis [Fatal]
  - Neutropenia [Unknown]
  - Stomatitis [Unknown]
  - Neutropenic infection [Unknown]
  - Thrombosis [Unknown]
  - Embolism [Unknown]
  - Anaemia [Unknown]
  - Leukopenia [Unknown]
  - Thrombocytopenia [Unknown]
  - Vomiting [Unknown]
  - Nausea [Unknown]
  - Diarrhoea [Unknown]
  - Palmar-plantar erythrodysaesthesia syndrome [Unknown]
  - Fatigue [Unknown]
  - Infection [Unknown]
  - Decreased appetite [Unknown]
  - Pneumonia [Unknown]
  - Urinary tract infection [Unknown]
  - Asthenia [Unknown]
  - Febrile neutropenia [Unknown]
